FAERS Safety Report 12909784 (Version 1)
Quarter: 2016Q4

REPORT INFORMATION
  Report Type: Spontaneous
  Country: US (occurrence: US)
  Receive Date: 20161104
  Receipt Date: 20161104
  Transmission Date: 20170207
  Serious: No
  Sender: FDA-Public Use
  Company Number: US-BRISTOL-MYERS SQUIBB COMPANY-BMS-2016-091590

PATIENT
  Sex: Female
  Weight: 65.7 kg

DRUGS (1)
  1. ELIQUIS [Suspect]
     Active Substance: APIXABAN
     Indication: PRODUCT USED FOR UNKNOWN INDICATION
     Dosage: 5 MG, BID
     Route: 048

REACTIONS (6)
  - Depression [Unknown]
  - Drug ineffective [Unknown]
  - Malaise [Unknown]
  - Abdominal pain upper [Unknown]
  - Weight increased [Unknown]
  - Visual impairment [Unknown]
